FAERS Safety Report 8515200-9 (Version None)
Quarter: 2012Q3

REPORT INFORMATION
  Report Type: 
  Country: None (occurrence: None)
  Receive Date: 20120717
  Receipt Date: 20120712
  Transmission Date: 20120928
  Serious: Yes (Other)
  Sender: FDA-Public Use
  Company Number: JP-GLAXOSMITHKLINE-B0814545A

PATIENT
  Sex: Male

DRUGS (3)
  1. UNKNOWN [Concomitant]
     Route: 048
  2. LEVODOPA/BENSERAZIDE [Concomitant]
     Route: 048
  3. DUTASTERIDE [Suspect]
     Indication: PRODUCT USED FOR UNKNOWN INDICATION
     Route: 048
     Dates: start: 20120709

REACTIONS (2)
  - TREMOR [None]
  - CONVULSION [None]
